FAERS Safety Report 5446259-3 (Version None)
Quarter: 2007Q3

REPORT INFORMATION
  Report Type: 
  Country: None (occurrence: None)
  Receive Date: 20070731
  Receipt Date: 20060816
  Transmission Date: 20080115
  Serious: Yes (Other)
  Sender: FDA-Public Use
  Company Number: US-2006-007051

PATIENT
  Age: 21 Year
  Sex: Female
  Weight: 59 kg

DRUGS (4)
  1. MAGNEVIST [Suspect]
     Indication: ANGIOGRAM
     Dosage: 40 ML, 1 DOSE, INTRAVENOUS
     Route: 042
     Dates: start: 20060309, end: 20060309
  2. MAGNEVIST [Suspect]
  3. MAGNEVIST [Suspect]
  4. ORTHO TRI-CYCLEN [Concomitant]

REACTIONS (4)
  - ERYTHEMA [None]
  - OEDEMA PERIPHERAL [None]
  - PAIN IN EXTREMITY [None]
  - THROMBOPHLEBITIS [None]
